FAERS Safety Report 9200784 (Version 3)
Quarter: 2013Q4

REPORT INFORMATION
  Report Type: Spontaneous
  Country: US (occurrence: US)
  Receive Date: 20130401
  Receipt Date: 20131031
  Transmission Date: 20140711
  Serious: Yes (Hospitalization)
  Sender: FDA-Public Use
  Company Number: US-BAYER-2013-039127

PATIENT
  Age: 29 Year
  Sex: Female
  Weight: 77.1 kg

DRUGS (5)
  1. MIRENA [Suspect]
     Indication: CONTRACEPTION
     Dosage: 20 MCG/24HR, CONT
     Route: 015
     Dates: start: 20100723, end: 20110301
  2. AMBIEN [Concomitant]
     Dosage: 1 EVERY EVENING
     Route: 048
  3. FLAGYL [Concomitant]
     Dosage: 500 MG, BID
     Route: 048
  4. LORTAB [Concomitant]
     Dosage: 1 AS NEEDED
     Route: 048
  5. PROZAC [Concomitant]
     Dosage: 20 MG, QD
     Route: 048

REACTIONS (6)
  - Uterine perforation [None]
  - Device issue [None]
  - Cholecystitis [None]
  - Pain [None]
  - Injury [None]
  - Emotional distress [None]
